FAERS Safety Report 8892431 (Version 2)
Quarter: 2012Q4

REPORT INFORMATION
  Report Type: Spontaneous
  Country: AR (occurrence: None)
  Receive Date: 20121101
  Receipt Date: 20121119
  Transmission Date: 20130627
  Serious: Yes (Life-Threatening, Hospitalization)
  Sender: FDA-Public Use
  Company Number: FK201203206

PATIENT

DRUGS (8)
  1. PROPOFOL [Suspect]
     Indication: SEDATION
     Route: 042
  2. PROPOFOL [Suspect]
     Indication: SEDATION
  3. PROPOFOL [Suspect]
     Indication: SEDATION
  4. PROPOFOL [Suspect]
     Indication: SEDATION
  5. MIDAZOLAM [Suspect]
     Indication: SEDATION
  6. FENTANYL [Suspect]
     Indication: SEDATION
  7. HYOSCINE [Suspect]
     Indication: SEDATION
  8. FLUMAZENIL [Suspect]
     Indication: SEDATION

REACTIONS (6)
  - Pyrexia [None]
  - Jaundice [None]
  - Gastric disorder [None]
  - Hepatitis C [None]
  - Wrong technique in drug usage process [None]
  - Suspected transmission of an infectious agent via product [None]
